FAERS Safety Report 8960330 (Version 1)
Quarter: 2012Q4

REPORT INFORMATION
  Report Type: 
  Country: US (occurrence: US)
  Receive Date: 20121212
  Receipt Date: 20121212
  Transmission Date: 20130627
  Serious: Yes (Hospitalization, Other)
  Sender: FDA-Public Use
  Company Number: US-ELI_LILLY_AND_COMPANY-US201212000862

PATIENT
  Sex: Female

DRUGS (2)
  1. HUMALOG LISPRO [Suspect]
     Dosage: UNK, unknown
  2. NOVOLIN [Concomitant]
     Dosage: UNK, unknown

REACTIONS (3)
  - Blood glucose increased [Unknown]
  - Viral infection [Unknown]
  - Drug ineffective [Unknown]
